FAERS Safety Report 16469502 (Version 3)
Quarter: 2019Q3

REPORT INFORMATION
  Report Type: Spontaneous
  Country: US (occurrence: US)
  Receive Date: 20190624
  Receipt Date: 20190729
  Transmission Date: 20191004
  Serious: No
  Sender: FDA-Public Use
  Company Number: US-SA-2019SA165301

PATIENT
  Age: 38 Year
  Sex: Female

DRUGS (1)
  1. FABRAZYME [Suspect]
     Active Substance: AGALSIDASE BETA
     Dosage: UNK UNK, UNK
     Route: 041
     Dates: start: 20170217

REACTIONS (1)
  - Blood immunoglobulin G increased [Unknown]

NARRATIVE: CASE EVENT DATE: 20190612
